FAERS Safety Report 17883048 (Version 1)
Quarter: 2020Q2

REPORT INFORMATION
  Report Type: Spontaneous
  Country: CA (occurrence: CA)
  Receive Date: 20200611
  Receipt Date: 20200611
  Transmission Date: 20200714
  Serious: Yes (Hospitalization)
  Sender: FDA-Public Use
  Company Number: CA-ROCHE-2613258

PATIENT
  Age: 65 Year
  Sex: Male

DRUGS (36)
  1. CLOBETASOL [Concomitant]
     Active Substance: CLOBETASOL
     Route: 065
  2. N ACETYL CYSTEINE [Concomitant]
     Active Substance: ACETYLCYSTEINE
  3. SYNTHROID [Concomitant]
     Active Substance: LEVOTHYROXINE SODIUM
     Route: 048
  4. TICAGRELOR. [Concomitant]
     Active Substance: TICAGRELOR
     Route: 048
  5. ACETYLSALICYLIC ACID [Concomitant]
     Active Substance: ASPIRIN
     Route: 065
  6. GABAPENTIN. [Concomitant]
     Active Substance: GABAPENTIN
     Route: 065
  7. LIOTHYRONINE SODIUM. [Concomitant]
     Active Substance: LIOTHYRONINE SODIUM
     Route: 065
  8. TARGIN [Concomitant]
     Active Substance: NALOXONE HYDROCHLORIDE\OXYCODONE HYDROCHLORIDE
     Dosage: 2 DF
     Route: 065
  9. ZANTAC [Concomitant]
     Active Substance: RANITIDINE HYDROCHLORIDE
  10. SOMATROPIN. [Suspect]
     Active Substance: SOMATROPIN
     Indication: GROWTH HORMONE DEFICIENCY
     Route: 065
  11. ANDROGEL [Concomitant]
     Active Substance: TESTOSTERONE
     Route: 065
  12. GLUCOBAY [Concomitant]
     Active Substance: ACARBOSE
     Route: 065
  13. PERCOCET [Concomitant]
     Active Substance: ACETAMINOPHEN\OXYCODONE HYDROCHLORIDE
  14. VITAMIN B [Concomitant]
     Active Substance: VITAMIN B
  15. CANNABIS SATIVA OIL [Concomitant]
     Active Substance: CANNABIS SATIVA SUBSP. INDICA TOP
     Route: 065
  16. CONTACT LAXATIVES [Concomitant]
     Active Substance: UNSPECIFIED INGREDIENT
     Dosage: 10 DF
     Route: 065
  17. GLUMETZA [Concomitant]
     Active Substance: METFORMIN HYDROCHLORIDE
  18. LANTUS [Concomitant]
     Active Substance: INSULIN GLARGINE
  19. METFORMIN [Concomitant]
     Active Substance: METFORMIN HYDROCHLORIDE
     Route: 065
  20. SOMATROPIN. [Suspect]
     Active Substance: SOMATROPIN
     Indication: HYPOPITUITARISM
     Dosage: THERAPY DURATION: 3.0 YEARS
     Route: 065
  21. ELTROXIN [Concomitant]
     Active Substance: LEVOTHYROXINE
     Route: 065
  22. REACTINE [CETIRIZINE HYDROCHLORIDE] [Concomitant]
     Active Substance: CETIRIZINE HYDROCHLORIDE
     Route: 065
  23. DIAZEPAM. [Concomitant]
     Active Substance: DIAZEPAM
     Route: 065
  24. MAGNESIUM GLYCINATE [Concomitant]
     Active Substance: MAGNESIUM GLYCINATE
     Route: 065
  25. METOPROLOL. [Concomitant]
     Active Substance: METOPROLOL
     Route: 065
  26. OLMETEC [Concomitant]
     Active Substance: OLMESARTAN MEDOXOMIL
     Route: 048
  27. ROSUVASTATIN CALCIUM. [Concomitant]
     Active Substance: ROSUVASTATIN CALCIUM
     Route: 048
  28. VICTOZA [Concomitant]
     Active Substance: LIRAGLUTIDE
  29. AMLODIPINE BESILATE [Concomitant]
     Active Substance: AMLODIPINE BESYLATE
     Route: 048
  30. CANDESARTAN. [Concomitant]
     Active Substance: CANDESARTAN
     Route: 065
  31. CORTEF [Concomitant]
     Active Substance: HYDROCORTISONE
     Route: 048
  32. TECTA [Concomitant]
     Active Substance: PANTOPRAZOLE MAGNESIUM
     Route: 065
  33. CONTACT LAXATIVES [Concomitant]
     Active Substance: UNSPECIFIED INGREDIENT
     Dosage: 7 DF
     Route: 065
  34. INSULIN [Concomitant]
     Active Substance: INSULIN NOS
  35. VIT D [Concomitant]
     Active Substance: VITAMIN D NOS
  36. ZINC. [Concomitant]
     Active Substance: ZINC

REACTIONS (5)
  - Device related infection [Unknown]
  - Fatigue [Unknown]
  - Inappropriate schedule of product administration [Unknown]
  - Somnolence [Unknown]
  - Osteonecrosis [Unknown]
